FAERS Safety Report 14247454 (Version 1)
Quarter: 2017Q4

REPORT INFORMATION
  Report Type: Spontaneous
  Country: US (occurrence: None)
  Receive Date: 20171201
  Receipt Date: 20171201
  Transmission Date: 20180321
  Serious: No
  Sender: FDA-Public Use
  Company Number: None

PATIENT
  Age: 64 Year
  Sex: Male
  Weight: 56.7 kg

DRUGS (1)
  1. WARFARIN [Suspect]
     Active Substance: WARFARIN
     Indication: PULMONARY EMBOLISM
     Route: 048
     Dates: start: 20171112, end: 20171129

REACTIONS (6)
  - International normalised ratio increased [None]
  - Hypophagia [None]
  - Hepatitis [None]
  - Therapy cessation [None]
  - Malaise [None]
  - Ecchymosis [None]

NARRATIVE: CASE EVENT DATE: 20171201
